FAERS Safety Report 17099207 (Version 1)
Quarter: 2019Q4

REPORT INFORMATION
  Report Type: Spontaneous
  Country: FR (occurrence: FR)
  Receive Date: 20191202
  Receipt Date: 20191202
  Transmission Date: 20200122
  Serious: Yes (Other)
  Sender: FDA-Public Use
  Company Number: NVSC2019FR049624

PATIENT
  Age: 27 Year
  Sex: Male

DRUGS (1)
  1. CLOMIPRAMINE [Suspect]
     Active Substance: CLOMIPRAMINE
     Indication: MENTAL DISORDER
     Dosage: 2 DF, QD
     Route: 048
     Dates: end: 201908

REACTIONS (2)
  - Erectile dysfunction [Recovered/Resolved]
  - Dysuria [Recovered/Resolved]

NARRATIVE: CASE EVENT DATE: 2019
